FAERS Safety Report 25443314 (Version 1)
Quarter: 2025Q2

REPORT INFORMATION
  Report Type: Spontaneous
  Country: CA (occurrence: None)
  Receive Date: 20250617
  Receipt Date: 20250617
  Transmission Date: 20250716
  Serious: Yes (Hospitalization, Disabling, Other)
  Sender: ADIENNE PHARMA & BIOTECH
  Company Number: CA-ADIENNEP-2025AD000369

PATIENT
  Age: 19 Month
  Sex: Female
  Weight: 13 kg

DRUGS (12)
  1. THIOTEPA [Suspect]
     Active Substance: THIOTEPA
     Indication: Bone marrow conditioning regimen
     Route: 042
  2. CYCLOPHOSPHAMIDE [Suspect]
     Active Substance: CYCLOPHOSPHAMIDE
     Indication: Bone marrow conditioning regimen
     Route: 042
  3. AMLODIPINE [Concomitant]
     Active Substance: AMLODIPINE BESYLATE
  4. CEFTAZIDIME [Concomitant]
     Active Substance: CEFTAZIDIME
  5. FAMOTIDINE [Concomitant]
     Active Substance: FAMOTIDINE
  6. FLUCONAZOLE [Concomitant]
     Active Substance: FLUCONAZOLE
  7. MELATONIN [Concomitant]
     Active Substance: MELATONIN
  8. MESNA [Concomitant]
     Active Substance: MESNA
  9. ONDANSETRON [Concomitant]
     Active Substance: ONDANSETRON
  10. POLYETHILENE GLYCOL [Concomitant]
  11. URSODIOL [Concomitant]
     Active Substance: URSODIOL
  12. BEYFORTUS SINGLE-USE PRE-FILLED SYRINGE [Concomitant]

REACTIONS (3)
  - Transfusion [Recovered/Resolved]
  - Aplastic anaemia [Recovered/Resolved]
  - Mucosal inflammation [Recovered/Resolved]
